FAERS Safety Report 8373215-8 (Version None)
Quarter: 2012Q2

REPORT INFORMATION
  Report Type: 
  Country: None (occurrence: None)
  Receive Date: 20120521
  Receipt Date: 20120510
  Transmission Date: 20120825
  Serious: Yes (Other)
  Sender: FDA-Public Use
  Company Number: US-ASTRAZENECA-2012SE30197

PATIENT
  Age: 88 Year
  Sex: Female

DRUGS (10)
  1. ASPIRIN [Concomitant]
  2. LEVOTHYROXINE SODIUM [Concomitant]
  3. METOPROLOL TARTRATE [Concomitant]
  4. CRESTOR [Suspect]
     Indication: HYPERCHOLESTEROLAEMIA
     Route: 048
  5. SILVER CENTRUM [Concomitant]
  6. COUMADIN [Concomitant]
  7. SOTALOL HCL [Concomitant]
  8. IRBESARTAN [Concomitant]
  9. TYLENOL [Concomitant]
     Indication: PAIN
  10. NORVASC (LODIPINE) [Concomitant]

REACTIONS (8)
  - BACK PAIN [None]
  - SPINAL COLUMN STENOSIS [None]
  - ACTIVITIES OF DAILY LIVING IMPAIRED [None]
  - CARDIAC DISORDER [None]
  - PAIN IN EXTREMITY [None]
  - SPINAL OSTEOARTHRITIS [None]
  - MUSCULOSKELETAL PAIN [None]
  - BODY HEIGHT DECREASED [None]
